FAERS Safety Report 5443336-8 (Version None)
Quarter: 2007Q3

REPORT INFORMATION
  Report Type: 
  Country: None (occurrence: None)
  Receive Date: 20070730
  Receipt Date: 20070208
  Transmission Date: 20080115
  Serious: Yes (Hospitalization)
  Sender: FDA-Public Use
  Company Number: 234851

PATIENT
  Age: 70 Year
  Sex: Female

DRUGS (10)
  1. RITUXAN [Suspect]
     Indication: NON-HODGKIN'S LYMPHOMA
     Dosage: 375 MG/M2, 1/WEEK, INTRAVENOUS
     Route: 042
     Dates: start: 20061109, end: 20061130
  2. TRIAMTERENE AND HYDROCHLOROTHIAZIDE [Concomitant]
  3. POTASSIUM (POTASSIUM NOS) [Concomitant]
  4. MOBIC [Concomitant]
  5. LIPITOR [Concomitant]
  6. ALLOPURINOL [Concomitant]
  7. BONIVA [Concomitant]
  8. ASPIRIN [Concomitant]
  9. LOMOTIL [Concomitant]
  10. GLUCOSAMINE (GLUCOSAMINE) [Concomitant]

REACTIONS (1)
  - DIARRHOEA [None]
